FAERS Safety Report 11674534 (Version 2)
Quarter: 2015Q4

REPORT INFORMATION
  Report Type: Spontaneous
  Country: US (occurrence: US)
  Receive Date: 20151028
  Receipt Date: 20151127
  Transmission Date: 20160304
  Serious: Yes (Other)
  Sender: FDA-Public Use
  Company Number: US-ASTRAZENECA-2015SF01998

PATIENT
  Age: 597 Month
  Sex: Male
  Weight: 129.3 kg

DRUGS (1)
  1. SYMBICORT [Suspect]
     Active Substance: BUDESONIDE\FORMOTEROL FUMARATE DIHYDRATE
     Indication: CHRONIC OBSTRUCTIVE PULMONARY DISEASE
     Dosage: 4.5 MCG 160 UG 2 PUFFS TWO TIMES A DAY
     Route: 055

REACTIONS (3)
  - Product quality issue [Unknown]
  - Grip strength decreased [Unknown]
  - Femur fracture [Unknown]

NARRATIVE: CASE EVENT DATE: 201311
